FAERS Safety Report 23785674 (Version 3)
Quarter: 2024Q3

REPORT INFORMATION
  Report Type: Spontaneous
  Country: US (occurrence: US)
  Receive Date: 20240425
  Receipt Date: 20240821
  Transmission Date: 20241017
  Serious: Yes (Hospitalization)
  Sender: BRISTOL MYERS SQUIBB
  Company Number: US-BRISTOL-MYERS SQUIBB COMPANY-2024-061254

PATIENT
  Age: 73 Year
  Sex: Female
  Weight: 91.17 kg

DRUGS (2)
  1. REVLIMID [Suspect]
     Active Substance: LENALIDOMIDE
     Indication: Plasma cell myeloma
     Dosage: DAILY 21 DAYS
     Route: 048
  2. REVLIMID [Suspect]
     Active Substance: LENALIDOMIDE

REACTIONS (4)
  - Arthropathy [Recovering/Resolving]
  - Fatigue [Unknown]
  - Asthenia [Unknown]
  - Somnolence [Unknown]
